FAERS Safety Report 9672374 (Version 2)
Quarter: 2013Q4

REPORT INFORMATION
  Report Type: Report from Study
  Country: CA (occurrence: CA)
  Receive Date: 20131106
  Receipt Date: 20131209
  Transmission Date: 20140711
  Serious: Yes (Other)
  Sender: FDA-Public Use
  Company Number: CA-ABBVIE-13P-028-1165798-00

PATIENT
  Sex: Female
  Weight: 59.47 kg

DRUGS (2)
  1. HUMIRA [Suspect]
     Indication: CROHN^S DISEASE
     Route: 058
     Dates: start: 20071221, end: 20130903
  2. HUMIRA [Suspect]
     Route: 058
     Dates: start: 20131112

REACTIONS (1)
  - Jaw disorder [Recovered/Resolved]
